FAERS Safety Report 14848455 (Version 1)
Quarter: 2018Q2

REPORT INFORMATION
  Report Type: Spontaneous
  Country: US (occurrence: US)
  Receive Date: 20180504
  Receipt Date: 20180504
  Transmission Date: 20180711
  Serious: Yes (Death, Other)
  Sender: FDA-Public Use
  Company Number: US-ASTRAZENECA-2018SE58937

PATIENT
  Age: 27454 Day
  Sex: Female
  Weight: 71.2 kg

DRUGS (4)
  1. OMEPRAZOLE. [Suspect]
     Active Substance: OMEPRAZOLE
     Indication: GASTROOESOPHAGEAL REFLUX DISEASE
     Route: 048
  2. BACLOFEN. [Concomitant]
     Active Substance: BACLOFEN
     Indication: MUSCLE RIGIDITY
  3. SEROQUEL [Suspect]
     Active Substance: QUETIAPINE FUMARATE
     Indication: ABNORMAL BEHAVIOUR
     Route: 048
     Dates: start: 201005
  4. SEROQUEL [Suspect]
     Active Substance: QUETIAPINE FUMARATE
     Indication: SLEEP DISORDER
     Route: 048
     Dates: start: 201005

REACTIONS (14)
  - Aspiration [Fatal]
  - Neuroleptic malignant syndrome [Unknown]
  - Off label use [Unknown]
  - Product use in unapproved indication [Unknown]
  - Gastrooesophageal reflux disease [Unknown]
  - Euthanasia [Unknown]
  - Craniocerebral injury [Unknown]
  - Iron deficiency anaemia [Unknown]
  - Weight increased [Unknown]
  - Therapy cessation [Unknown]
  - Cerebral atrophy [Unknown]
  - Arrhythmia [Recovered/Resolved]
  - Upper limb fracture [Unknown]
  - Vomiting [Unknown]

NARRATIVE: CASE EVENT DATE: 201009
